FAERS Safety Report 12971095 (Version 2)
Quarter: 2016Q4

REPORT INFORMATION
  Report Type: Spontaneous
  Country: US (occurrence: US)
  Receive Date: 20161123
  Receipt Date: 20161128
  Transmission Date: 20170207
  Serious: No
  Sender: FDA-Public Use
  Company Number: US-JAZZ-2016-US-019044

PATIENT
  Age: 56 Year
  Sex: Female

DRUGS (30)
  1. BISOPROLOL W/HYDROCHLOROTHIAZIDE   /01166101/ [Concomitant]
  2. DIAZEPAM. [Concomitant]
     Active Substance: DIAZEPAM
  3. PROVIGIL [Concomitant]
     Active Substance: MODAFINIL
  4. DOXEPIN [Concomitant]
     Active Substance: DOXEPIN
  5. VOLTAREN [Concomitant]
     Active Substance: DICLOFENAC SODIUM
  6. PHENERGAN [Concomitant]
     Active Substance: PROMETHAZINE HYDROCHLORIDE
  7. XYREM [Suspect]
     Active Substance: SODIUM OXYBATE
     Dosage: 4.5 G, BID
     Route: 048
     Dates: start: 201410
  8. OMEPRAZOLE DR [Concomitant]
     Active Substance: OMEPRAZOLE
  9. OPANA ER [Concomitant]
     Active Substance: OXYMORPHONE HYDROCHLORIDE
  10. HYDROXYCHLOROQUINE                 /00072603/ [Concomitant]
     Active Substance: HYDROXYCHLOROQUINE SULFATE
  11. PRAVASTATIN SODIUM. [Concomitant]
     Active Substance: PRAVASTATIN SODIUM
  12. XYREM [Suspect]
     Active Substance: SODIUM OXYBATE
     Indication: SOMNOLENCE
     Dosage: 2.25 G, BID
     Route: 048
     Dates: start: 201408, end: 201408
  13. PREDNISONE. [Concomitant]
     Active Substance: PREDNISONE
  14. TRAZODONE [Concomitant]
     Active Substance: TRAZODONE HYDROCHLORIDE
  15. OXYCODONE AND ACETAMINOPHEN [Concomitant]
     Active Substance: ACETAMINOPHEN\OXYCODONE HYDROCHLORIDE
  16. NABUMETONE. [Concomitant]
     Active Substance: NABUMETONE
  17. TOPAMAX [Concomitant]
     Active Substance: TOPIRAMATE
  18. PERCOCET                           /00446701/ [Concomitant]
     Active Substance: ACETAMINOPHEN\OXYCODONE HYDROCHLORIDE\OXYCODONE TEREPHTHALATE
  19. SULFASALAZINE. [Concomitant]
     Active Substance: SULFASALAZINE
  20. WELLBUTRIN XL [Concomitant]
     Active Substance: BUPROPION HYDROCHLORIDE
  21. LYRICA [Concomitant]
     Active Substance: PREGABALIN
  22. LIDOCAINE HCL [Concomitant]
     Active Substance: LIDOCAINE HYDROCHLORIDE
  23. XANAX [Concomitant]
     Active Substance: ALPRAZOLAM
  24. XYREM [Suspect]
     Active Substance: SODIUM OXYBATE
     Dosage: DOSE ADJUSTMENTS
     Route: 048
     Dates: start: 201408, end: 201410
  25. PREVACID [Concomitant]
     Active Substance: LANSOPRAZOLE
  26. VALIUM [Concomitant]
     Active Substance: DIAZEPAM
  27. TOPIRAMATE ER [Concomitant]
  28. MS CONTIN [Concomitant]
     Active Substance: MORPHINE SULFATE
  29. ABILIFY [Concomitant]
     Active Substance: ARIPIPRAZOLE
  30. LEXAPRO [Concomitant]
     Active Substance: ESCITALOPRAM OXALATE

REACTIONS (1)
  - Blood cholesterol increased [Unknown]

NARRATIVE: CASE EVENT DATE: 201609
